FAERS Safety Report 15363680 (Version 4)
Quarter: 2019Q2

REPORT INFORMATION
  Report Type: Report from Study
  Country: US (occurrence: US)
  Receive Date: 20180907
  Receipt Date: 20190429
  Transmission Date: 20190711
  Serious: No
  Sender: FDA-Public Use
  Company Number: PHEH2018US036359

PATIENT
  Sex: Female

DRUGS (2)
  1. TASIGNA [Suspect]
     Active Substance: NILOTINIB
     Indication: PRODUCT USED FOR UNKNOWN INDICATION
     Route: 048
  2. GLEEVEC [Suspect]
     Active Substance: IMATINIB MESYLATE
     Indication: PRODUCT USED FOR UNKNOWN INDICATION
     Route: 065

REACTIONS (10)
  - Extrasystoles [Recovering/Resolving]
  - Nasopharyngitis [Unknown]
  - Blood magnesium abnormal [Unknown]
  - Malaise [Unknown]
  - Cold sweat [Unknown]
  - Fatigue [Unknown]
  - Blood cholesterol increased [Unknown]
  - Blood potassium abnormal [Unknown]
  - Decreased appetite [Unknown]
  - Alopecia [Unknown]
